FAERS Safety Report 9475849 (Version 1)
Quarter: 2013Q3

REPORT INFORMATION
  Report Type: Spontaneous
  Country: US (occurrence: None)
  Receive Date: 20130808
  Receipt Date: 20130808
  Transmission Date: 20140515
  Serious: Yes (Hospitalization, Other)
  Sender: FDA-Public Use
  Company Number: 2013PROUSA03005

PATIENT
  Age: 73 Year
  Sex: Male
  Weight: 78.9 kg

DRUGS (4)
  1. PROVENGE [Suspect]
     Indication: PROSTATE CANCER METASTATIC
     Route: 042
     Dates: start: 20130404, end: 20130405
  2. LOTREL (AMLODIPINE BESILATE, BENAZEPRIL HYDROCHLORIDE) [Concomitant]
  3. OMEGA 3 FISH OIL (FISH OIL) [Concomitant]
  4. CALCIUM WITH VITAMIN D (CALCIUM CARBONATE, COLECALCIFEROL) [Concomitant]

REACTIONS (12)
  - Enterobacter bacteraemia [None]
  - Metastases to bone [None]
  - Malignant neoplasm progression [None]
  - Ventricular tachycardia [None]
  - Bladder disorder [None]
  - Renal atrophy [None]
  - Renal cyst [None]
  - Chills [None]
  - Escherichia bacteraemia [None]
  - Sepsis [None]
  - Scar [None]
  - Product contamination [None]
